FAERS Safety Report 9021937 (Version 1)
Quarter: 2013Q1

REPORT INFORMATION
  Report Type: Spontaneous
  Country: FR (occurrence: FR)
  Receive Date: 20130118
  Receipt Date: 20130118
  Transmission Date: 20140127
  Serious: Yes (Hospitalization)
  Sender: FDA-Public Use
  Company Number: FR-JNJFOC-20130105102

PATIENT
  Age: 74 None
  Sex: Female

DRUGS (4)
  1. IMODIUM [Suspect]
     Indication: NAUSEA
     Dosage: 3 TO 4 DOSES A DAY
     Route: 048
     Dates: start: 20121218, end: 20121223
  2. FLUDEX [Suspect]
     Indication: HYPERTENSION
     Route: 048
     Dates: start: 20121214, end: 20121224
  3. TARKA [Suspect]
     Indication: HYPERTENSION
     Route: 048
     Dates: start: 20121214, end: 20121224
  4. BACTRIM [Suspect]
     Indication: GASTROENTERITIS
     Route: 048
     Dates: start: 20121221, end: 20121222

REACTIONS (1)
  - Rash maculo-papular [Recovered/Resolved]
